FAERS Safety Report 7480975-7 (Version None)
Quarter: 2011Q2

REPORT INFORMATION
  Report Type: 
  Country: None (occurrence: None)
  Receive Date: 20110512
  Receipt Date: 20110512
  Transmission Date: 20111010
  Serious: Yes (Other)
  Sender: FDA-Public Use
  Company Number: None

PATIENT
  Sex: Female
  Weight: 86.1834 kg

DRUGS (2)
  1. ALENDRONATE SODIUM [Suspect]
     Indication: BONE DISORDER
     Dosage: 1 TAB 1 A WEEK MOUTH
     Route: 048
     Dates: start: 20060301, end: 20101101
  2. ACTONEL [Suspect]
     Indication: BONE DISORDER
     Dosage: 1 TAB 1 A WEEK MOUTH
     Route: 048
     Dates: start: 20010901, end: 20060401

REACTIONS (2)
  - BONE DISORDER [None]
  - KNEE ARTHROPLASTY [None]
